FAERS Safety Report 24181490 (Version 1)
Quarter: 2024Q3

REPORT INFORMATION
  Report Type: Spontaneous
  Country: GB (occurrence: GB)
  Receive Date: 20240807
  Receipt Date: 20240807
  Transmission Date: 20241016
  Serious: Yes (Hospitalization)
  Sender: CELLTRION
  Company Number: GB-CELLTRION INC.-2024GB018561

PATIENT

DRUGS (1)
  1. YUFLYMA [Suspect]
     Active Substance: ADALIMUMAB-AATY
     Indication: Colitis ulcerative
     Dosage: 40MG PEN PK2
     Route: 058
     Dates: start: 202405

REACTIONS (3)
  - Condition aggravated [Unknown]
  - Malaise [Unknown]
  - Peripheral swelling [Unknown]
